FAERS Safety Report 25101526 (Version 1)
Quarter: 2025Q1

REPORT INFORMATION
  Report Type: Spontaneous
  Country: DE (occurrence: DE)
  Receive Date: 20250320
  Receipt Date: 20250320
  Transmission Date: 20250409
  Serious: Yes (Other)
  Sender: GILEAD
  Company Number: DE-GILEAD-2025-0707751

PATIENT
  Age: 62 Year
  Sex: Female

DRUGS (2)
  1. YESCARTA [Suspect]
     Active Substance: AXICABTAGENE CILOLEUCEL
     Indication: Follicular lymphoma stage IV
     Route: 065
  2. YESCARTA [Suspect]
     Active Substance: AXICABTAGENE CILOLEUCEL
     Indication: Diffuse large B-cell lymphoma

REACTIONS (4)
  - B-cell aplasia [Not Recovered/Not Resolved]
  - Immune effector cell-associated haematotoxicity [Unknown]
  - Immune effector cell-associated neurotoxicity syndrome [Unknown]
  - Hypogammaglobulinaemia [Unknown]
